FAERS Safety Report 8202097-X (Version None)
Quarter: 2012Q1

REPORT INFORMATION
  Report Type: 
  Country: None (occurrence: None)
  Receive Date: 20120227
  Receipt Date: 20111111
  Transmission Date: 20120608
  Serious: No
  Sender: FDA-Public Use
  Company Number: 341099

PATIENT
  Age: 59 Year
  Sex: Female

DRUGS (2)
  1. VICTOZA [Suspect]
     Indication: TYPE 2 DIABETES MELLITUS
     Dosage: 1.2 MG, QD, SUBCUTANEOUS
     Route: 058
  2. METFORMIN HCL [Concomitant]

REACTIONS (7)
  - WEIGHT INCREASED [None]
  - ASTHENIA [None]
  - MALAISE [None]
  - NAUSEA [None]
  - FEELING ABNORMAL [None]
  - DISTURBANCE IN ATTENTION [None]
  - FOOD CRAVING [None]
